FAERS Safety Report 25916447 (Version 1)
Quarter: 2025Q4

REPORT INFORMATION
  Report Type: Report from Study
  Country: EU (occurrence: None)
  Receive Date: 20251014
  Receipt Date: 20251014
  Transmission Date: 20260117
  Serious: Yes (Hospitalization, Other)
  Sender: UCB
  Company Number: EU-UCBSA-2025010725

PATIENT
  Age: 58 Year
  Weight: 83 kg

DRUGS (1)
  1. BIMEKIZUMAB [Suspect]
     Active Substance: BIMEKIZUMAB
     Indication: Psoriasis
     Dosage: 320 MILLIGRAM, EV 4 WEEKS

REACTIONS (9)
  - Hip arthroplasty [Recovered/Resolved]
  - Fistula repair [Recovered/Resolved]
  - Fistula [Recovered/Resolved]
  - Staphylococcal infection [Recovered/Resolved]
  - Nausea [Unknown]
  - Pain [Not Recovered/Not Resolved]
  - Posture abnormal [Not Recovered/Not Resolved]
  - Blepharitis [Recovered/Resolved]
  - Intentional dose omission [Unknown]
